FAERS Safety Report 10203294 (Version 1)
Quarter: 2014Q2

REPORT INFORMATION
  Report Type: Report from Study
  Country: NL (occurrence: NL)
  Receive Date: 20140529
  Receipt Date: 20140529
  Transmission Date: 20141212
  Serious: Yes (Other)
  Sender: FDA-Public Use
  Company Number: NL-ROCHE-1406418

PATIENT
  Age: 85 Year
  Sex: Female
  Weight: 47 kg

DRUGS (10)
  1. TOCILIZUMAB [Suspect]
     Indication: RHEUMATOID ARTHRITIS
     Route: 058
     Dates: start: 20140315
  2. HYDROXYCHLOROQUINE [Concomitant]
     Route: 065
     Dates: start: 2011
  3. PREDNISONE [Concomitant]
     Dosage: 7.5 -10 MG ALTERNATING
     Route: 065
     Dates: start: 2005
  4. ACLASTA [Concomitant]
     Route: 065
     Dates: start: 2010
  5. THYRAX [Concomitant]
     Route: 065
     Dates: start: 2005
  6. ACETYLSALICYLIC ACID [Concomitant]
     Route: 065
     Dates: start: 2008
  7. PANTOPRAZOLE [Concomitant]
     Route: 065
     Dates: start: 2006
  8. DUSPATAL [Concomitant]
     Route: 065
     Dates: start: 2006
  9. PERSANTIN [Concomitant]
     Route: 065
     Dates: start: 2006
  10. PARACETAMOL [Concomitant]
     Route: 065
     Dates: start: 2000

REACTIONS (1)
  - Psoriasis [Not Recovered/Not Resolved]
